FAERS Safety Report 24218437 (Version 4)
Quarter: 2025Q1

REPORT INFORMATION
  Report Type: Report from Study
  Country: CA (occurrence: CA)
  Receive Date: 20240816
  Receipt Date: 20250226
  Transmission Date: 20250409
  Serious: Yes (Hospitalization, Other)
  Sender: TAKEDA
  Company Number: CA-TAKEDA-2023TUS076889

PATIENT
  Age: 72 Year
  Sex: Male

DRUGS (14)
  1. VEDOLIZUMAB [Suspect]
     Active Substance: VEDOLIZUMAB
     Indication: Crohn^s disease
  2. VEDOLIZUMAB [Suspect]
     Active Substance: VEDOLIZUMAB
  3. VEDOLIZUMAB [Suspect]
     Active Substance: VEDOLIZUMAB
  4. VEDOLIZUMAB [Suspect]
     Active Substance: VEDOLIZUMAB
  5. VEDOLIZUMAB [Suspect]
     Active Substance: VEDOLIZUMAB
  6. VEDOLIZUMAB [Suspect]
     Active Substance: VEDOLIZUMAB
  7. VEDOLIZUMAB [Suspect]
     Active Substance: VEDOLIZUMAB
     Indication: Crohn^s disease
     Dosage: 108 MILLIGRAM, Q2WEEKS
     Dates: start: 20241205
  8. PERINDOPRIL [Concomitant]
     Active Substance: PERINDOPRIL
  9. VITAMIN B12 [Concomitant]
     Active Substance: CYANOCOBALAMIN
  10. ZOPICLONE [Concomitant]
     Active Substance: ZOPICLONE
  11. OMEPRAZOLE [Concomitant]
     Active Substance: OMEPRAZOLE
  12. INCRUSE ELLIPTA [Concomitant]
     Active Substance: UMECLIDINIUM BROMIDE
  13. PREDNISONE [Concomitant]
     Active Substance: PREDNISONE
  14. METRONIDAZOLE [Concomitant]
     Active Substance: METRONIDAZOLE

REACTIONS (5)
  - Crohn^s disease [Recovered/Resolved]
  - Drug effect less than expected [Not Recovered/Not Resolved]
  - Abdominal pain [Unknown]
  - Headache [Unknown]
  - Fatigue [Unknown]

NARRATIVE: CASE EVENT DATE: 20240724
